FAERS Safety Report 6226686-7 (Version None)
Quarter: 2009Q2

REPORT INFORMATION
  Report Type: 
  Country: None (occurrence: None)
  Receive Date: 20090612
  Receipt Date: 20090605
  Transmission Date: 20091009
  Serious: Yes (Hospitalization)
  Sender: FDA-Public Use
  Company Number: JP-JNJFOC-20090402840

PATIENT
  Sex: Male
  Weight: 40 kg

DRUGS (3)
  1. RISPERDAL [Suspect]
     Route: 048
  2. RISPERDAL [Suspect]
     Indication: AUTISM SPECTRUM DISORDER
     Route: 048
  3. ANAFRANIL [Concomitant]
     Indication: AUTISM SPECTRUM DISORDER
     Route: 048

REACTIONS (2)
  - DIABETES MELLITUS [None]
  - NOCTURIA [None]
